FAERS Safety Report 6217534-X (Version None)
Quarter: 2009Q2

REPORT INFORMATION
  Report Type: 
  Country: None (occurrence: None)
  Receive Date: 20090608
  Receipt Date: 20090126
  Transmission Date: 20091009
  Serious: Yes (Other)
  Sender: FDA-Public Use
  Company Number: A0765306A

PATIENT
  Sex: Female

DRUGS (2)
  1. WELLBUTRIN [Suspect]
     Dosage: 150MG PER DAY
     Route: 048
     Dates: start: 20090124, end: 20090125
  2. FENTANYL [Concomitant]

REACTIONS (5)
  - ANXIETY [None]
  - HALLUCINATION [None]
  - INSOMNIA [None]
  - MICTURITION URGENCY [None]
  - PALPITATIONS [None]
